FAERS Safety Report 7161064-8 (Version None)
Quarter: 2010Q4

REPORT INFORMATION
  Report Type: 
  Country: None (occurrence: None)
  Receive Date: 20101214
  Receipt Date: 20101202
  Transmission Date: 20110411
  Serious: Yes (Death, Hospitalization)
  Sender: FDA-Public Use
  Company Number: CH-BRISTOL-MYERS SQUIBB COMPANY-15410582

PATIENT
  Age: 75 Year
  Sex: Male
  Weight: 64 kg

DRUGS (3)
  1. CETUXIMAB [Suspect]
     Indication: HEAD AND NECK CANCER
     Dosage: STRENGTH:5MG/ML RECENT INF(10TH):15NOV10
     Route: 042
     Dates: start: 20100906, end: 20101115
  2. CISPLATIN [Suspect]
     Indication: HEAD AND NECK CANCER
     Dosage: RECENT INF(4TH):15NOV10
     Route: 042
     Dates: start: 20100906, end: 20101115
  3. FLUOROURACIL [Suspect]
     Indication: HEAD AND NECK CANCER
     Dosage: CONTINUOUS INF FROM DAY 1 TO DAY 4 OF CYCLE RECENT INF(4TH):15NOV10
     Route: 042
     Dates: start: 20100906, end: 20101115

REACTIONS (8)
  - ACIDOSIS [None]
  - ATRIAL FIBRILLATION [None]
  - CARDIAC FAILURE CONGESTIVE [None]
  - ELECTROCARDIOGRAM ST SEGMENT DEPRESSION [None]
  - HYPOTENSION [None]
  - PNEUMONIA [None]
  - SEPSIS [None]
  - TROPONIN INCREASED [None]
